FAERS Safety Report 5839329-9 (Version None)
Quarter: 2008Q3

REPORT INFORMATION
  Report Type: 
  Country: None (occurrence: None)
  Receive Date: 20080808
  Receipt Date: 20080731
  Transmission Date: 20090109
  Serious: Yes (Other)
  Sender: FDA-Public Use
  Company Number: US-PFIZER INC-2008064898

PATIENT
  Sex: Female
  Weight: 70.3 kg

DRUGS (3)
  1. GEODON [Suspect]
     Indication: AFFECTIVE DISORDER
     Route: 048
     Dates: start: 20080701, end: 20080729
  2. LAMICTAL [Concomitant]
  3. PROZAC [Concomitant]

REACTIONS (5)
  - AMNESIA [None]
  - APHASIA [None]
  - DISORIENTATION [None]
  - DYSPHEMIA [None]
  - TREMOR [None]
